FAERS Safety Report 19487616 (Version 1)
Quarter: 2021Q3

REPORT INFORMATION
  Report Type: Spontaneous
  Country: DE (occurrence: DE)
  Receive Date: 20210702
  Receipt Date: 20210702
  Transmission Date: 20211014
  Serious: Yes (Life-Threatening, Hospitalization)
  Sender: FDA-Public Use
  Company Number: DE-SA-2021SA216072

PATIENT
  Age: 68 Year
  Sex: Female
  Weight: 55 kg

DRUGS (19)
  1. TACROLIMUS. [Suspect]
     Active Substance: TACROLIMUS
     Dosage: 1 MG, 2?0?2?0, CAPSULES
     Route: 048
  2. PREDNISOLON [PREDNISOLONE] [Concomitant]
     Active Substance: PREDNISOLONE
     Dosage: 5 MG, 1?0?0?0, TABLETS
     Route: 048
  3. AMLODIPINE [Concomitant]
     Active Substance: AMLODIPINE BESYLATE
     Dosage: 10 MG, 0?0?1?0, TABLETS
     Route: 048
  4. ESOMEPRAZOLE. [Concomitant]
     Active Substance: ESOMEPRAZOLE MAGNESIUM
     Dosage: 40 MG, 1?0?0?0, TABLETS
     Route: 048
  5. ZOPICLON [Concomitant]
     Active Substance: ZOPICLONE
     Dosage: 7.5 MG, 0?0?0?1, TABLETS
     Route: 048
  6. TORASEMIDE [Suspect]
     Active Substance: TORSEMIDE
     Dosage: 200 MG, 1?0?0?0, TABLETS
     Route: 048
  7. ACETYLSALICYLIC ACID [Concomitant]
     Active Substance: ASPIRIN
     Dosage: 100 MG, 0?1?0?0, TABLETS
     Route: 048
  8. CLOPIDOGREL [Concomitant]
     Active Substance: CLOPIDOGREL BISULFATE
     Dosage: 75 MG, 1?0?0?0, TABLETS
     Route: 048
  9. MYCOPHENOLIC ACID. [Suspect]
     Active Substance: MYCOPHENOLIC ACID
     Dosage: 360 MG, 1?0?1?0, TABLETS
     Route: 048
  10. CANDESARTAN. [Concomitant]
     Active Substance: CANDESARTAN
     Dosage: 16 MG, 1?0?0?0, TABLETS
     Route: 048
  11. BISOPROLOL [Concomitant]
     Active Substance: BISOPROLOL
     Dosage: 5 MG, 1?0?1?0, TABLETS
     Route: 048
  12. SEVELAMER CARBONATE. [Suspect]
     Active Substance: SEVELAMER CARBONATE
     Dosage: 800 MG, 1?1?1?0, TABLETS
     Route: 048
  13. CLONIDINE. [Suspect]
     Active Substance: CLONIDINE
     Dosage: 0.15 MG, 1?1?0?0, TABLETS
     Route: 048
  14. LEVOTHYROXINUM NATRICUM [Concomitant]
     Dosage: 275 UG, 1?0?0?0, TABLETS
     Route: 048
  15. URAPIDIL [Concomitant]
     Active Substance: URAPIDIL
     Dosage: 30 MG, 1?0?0?1, CAPSULES
     Route: 048
  16. ATORVASTATIN [Concomitant]
     Active Substance: ATORVASTATIN
     Dosage: 40 MG, 0?0?1?0, TABLETS
     Route: 048
  17. XIPAMID [Suspect]
     Active Substance: XIPAMIDE
     Dosage: 40 MG, 1?0?0?0, TABLETS
     Route: 048
  18. METAMIZOL [Concomitant]
     Active Substance: METAMIZOLE SODIUM
     Dosage: 500 MG, REQUIREMENT, TABLETS
     Route: 048
  19. TRAMADOL HYDROCHLORIDE. [Suspect]
     Active Substance: TRAMADOL HYDROCHLORIDE
     Dosage: 100 MG, 2?0?0?0, SUSTAINED?RELEASE TABLETS
     Route: 048

REACTIONS (10)
  - General physical health deterioration [Unknown]
  - Product monitoring error [Unknown]
  - Oedema peripheral [Unknown]
  - Product prescribing error [Unknown]
  - Gastrointestinal sounds abnormal [Unknown]
  - Abdominal pain [Unknown]
  - Nausea [Unknown]
  - Flatulence [Unknown]
  - Constipation [Unknown]
  - Vomiting [Unknown]
